FAERS Safety Report 6483481-1 (Version None)
Quarter: 2009Q4

REPORT INFORMATION
  Report Type: 
  Country: None (occurrence: None)
  Receive Date: 20091209
  Receipt Date: 20090429
  Transmission Date: 20100525
  Serious: No
  Sender: FDA-Public Use
  Company Number: US-AMGEN-KDL345036

PATIENT
  Sex: Male

DRUGS (2)
  1. ENBREL [Suspect]
     Indication: PSORIATIC ARTHROPATHY
     Route: 058
     Dates: start: 20041201
  2. ENBREL [Suspect]
     Indication: PSORIASIS

REACTIONS (3)
  - FEAR OF NEEDLES [None]
  - PSORIASIS [None]
  - WHITE BLOOD CELL COUNT DECREASED [None]
